FAERS Safety Report 12108905 (Version 1)
Quarter: 2016Q1

REPORT INFORMATION
  Report Type: Spontaneous
  Country: US (occurrence: US)
  Receive Date: 20160224
  Receipt Date: 20160224
  Transmission Date: 20160526
  Serious: No
  Sender: FDA-Public Use
  Company Number: US-009507513-1602USA007226

PATIENT
  Age: 63 Year
  Sex: Male

DRUGS (2)
  1. NASONEX [Suspect]
     Active Substance: MOMETASONE FUROATE
     Indication: HYPERSENSITIVITY
     Dosage: STRENGTH-50MCG, AEROSOL, 50 MICROGRAM, BID
     Route: 045
  2. NASONEX [Suspect]
     Active Substance: MOMETASONE FUROATE
     Indication: NASAL POLYPS

REACTIONS (3)
  - Dry skin [Recovered/Resolved]
  - Skin fissures [Recovered/Resolved]
  - Incorrect dose administered [Unknown]
